FAERS Safety Report 17243078 (Version 1)
Quarter: 2020Q1

REPORT INFORMATION
  Report Type: Spontaneous
  Country: FR (occurrence: FR)
  Receive Date: 20200107
  Receipt Date: 20200107
  Transmission Date: 20200409
  Serious: Yes (Hospitalization)
  Sender: FDA-Public Use
  Company Number: FR-TEVA-2019-FR-1162796

PATIENT
  Age: 77 Year
  Sex: Female

DRUGS (10)
  1. NORSET 15 MG, COMPRIME ORODISPERSIBLE [Concomitant]
     Dosage: 1 DOSAGE FORMS
     Route: 048
  2. LASILIX 40 MG, COMPRIME SECABLE [Concomitant]
     Active Substance: FUROSEMIDE
     Dosage: 1 DOSAGE FORMS
     Route: 048
  3. KALEORID LP 600 MG, COMPRIM? ? LIB?RATION PROLONG?E [Concomitant]
     Active Substance: POTASSIUM CHLORIDE
     Dosage: 1 DOSAGE FORMS
     Route: 048
  4. ALLOPURINOL. [Suspect]
     Active Substance: ALLOPURINOL
     Indication: GOUT
     Dosage: DON^T RENSEIGNEE
     Route: 048
     Dates: start: 20190816, end: 20190902
  5. LEVOTHYROX 50 MICROGRAMMES, COMPRIM? S?CABLE [Concomitant]
     Active Substance: LEVOTHYROXINE SODIUM
     Dosage: 1 DOSAGE FORMS
     Route: 048
  6. AUGMENTIN [Concomitant]
     Active Substance: AMOXICILLIN\CLAVULANATE POTASSIUM
     Dosage: 3 GRAM
     Route: 048
     Dates: start: 20190825, end: 20190830
  7. ZYMA D2 80 000 UI, SOLUTION BUVABLE EN AMPOULE [Concomitant]
     Dosage: 1 DOSAGE FORMS
     Route: 048
  8. RAMIPRIL. [Concomitant]
     Active Substance: RAMIPRIL
     Dosage: 2.5 MG
     Route: 048
  9. BISOPROLOL (FUMARATE ACIDE DE) [Concomitant]
     Active Substance: BISOPROLOL FUMARATE
     Dosage: 2.5 MG
     Route: 048
  10. PRADAXA [Concomitant]
     Active Substance: DABIGATRAN ETEXILATE MESYLATE
     Route: 048
     Dates: end: 20190820

REACTIONS (4)
  - Anaemia [Recovered/Resolved]
  - Cytopenia [Recovered/Resolved]
  - Lymphopenia [Recovered/Resolved]
  - Erythropenia [Recovered/Resolved]

NARRATIVE: CASE EVENT DATE: 20190820
